FAERS Safety Report 18444288 (Version 1)
Quarter: 2020Q4

REPORT INFORMATION
  Report Type: Spontaneous
  Country: US (occurrence: US)
  Receive Date: 20201030
  Receipt Date: 20201030
  Transmission Date: 20210114
  Serious: No
  Sender: FDA-Public Use
  Company Number: US-SA-2020SA303325

PATIENT

DRUGS (1)
  1. LEMTRADA [Suspect]
     Active Substance: ALEMTUZUMAB
     Dosage: DRUG STRUCTURE DOSAGE :   UNKNOWN  DRUG INTERVAL DOSAGE :   UNKNOWN
     Route: 041

REACTIONS (1)
  - Food allergy [Unknown]
